FAERS Safety Report 7333044-0 (Version None)
Quarter: 2011Q1

REPORT INFORMATION
  Report Type: 
  Country: None (occurrence: None)
  Receive Date: 20110304
  Receipt Date: 20110228
  Transmission Date: 20110831
  Serious: Yes (Other)
  Sender: FDA-Public Use
  Company Number: US-PFIZER INC-2007003714

PATIENT
  Sex: Female

DRUGS (7)
  1. BACTRIM [Concomitant]
     Dates: start: 20020101
  2. NEXIUM [Concomitant]
     Dates: start: 20020101
  3. AMITRIPTYLINE [Concomitant]
     Dates: start: 19950101
  4. MOTRIN [Concomitant]
     Dates: start: 19950101
  5. ZITHROMAX [Concomitant]
     Dates: start: 20020101
  6. NAPROSYN [Concomitant]
  7. NEURONTIN [Suspect]
     Dosage: 300 MG; 400 MG; 600 MG; 1200 MG;
     Dates: start: 19970314, end: 20040928

REACTIONS (9)
  - FATIGUE [None]
  - DEPRESSION [None]
  - SUICIDE ATTEMPT [None]
  - ATROPHY [None]
  - DIZZINESS [None]
  - HYPOAESTHESIA [None]
  - ANXIETY [None]
  - BALANCE DISORDER [None]
  - PAIN [None]
